FAERS Safety Report 6260567-8 (Version None)
Quarter: 2009Q3

REPORT INFORMATION
  Report Type: 
  Country: None (occurrence: None)
  Receive Date: 20090708
  Receipt Date: 20090702
  Transmission Date: 20100115
  Serious: Yes (Hospitalization)
  Sender: FDA-Public Use
  Company Number: DE-ABBOTT-09P-062-0583229-00

PATIENT
  Sex: Male

DRUGS (3)
  1. HUMIRA [Suspect]
     Indication: DRUG USE FOR UNKNOWN INDICATION
     Route: 058
     Dates: start: 20090226, end: 20090522
  2. INFUSIONS [Concomitant]
     Indication: DRUG USE FOR UNKNOWN INDICATION
  3. ANTIBIOTICS [Concomitant]
     Indication: DRUG USE FOR UNKNOWN INDICATION

REACTIONS (4)
  - CATHETER RELATED INFECTION [None]
  - CORONARY ARTERY THROMBOSIS [None]
  - LUNG ABSCESS [None]
  - PNEUMONIA [None]
